FAERS Safety Report 9695447 (Version 2)
Quarter: 2013Q4

REPORT INFORMATION
  Report Type: Spontaneous
  Country: AU (occurrence: AU)
  Receive Date: 20131119
  Receipt Date: 20131119
  Transmission Date: 20140711
  Serious: Yes (Other)
  Sender: FDA-Public Use
  Company Number: PHHY2013AU117974

PATIENT
  Age: 76 Year
  Sex: Female

DRUGS (3)
  1. AFINITOR [Suspect]
     Indication: BREAST CANCER METASTATIC
     Dosage: 10 MG, DAILY
     Route: 048
  2. AFINITOR [Suspect]
     Dosage: 10 MG, DAILY
     Route: 048
  3. EXEMESTANE [Concomitant]

REACTIONS (4)
  - Aphagia [Recovered/Resolved]
  - Mucosal inflammation [Recovered/Resolved]
  - Mouth ulceration [Recovered/Resolved]
  - Dysphagia [Recovered/Resolved]
